FAERS Safety Report 9495060 (Version 1)
Quarter: 2013Q3

REPORT INFORMATION
  Report Type: Spontaneous
  Country: US (occurrence: None)
  Receive Date: 20130828
  Receipt Date: 20130828
  Transmission Date: 20140515
  Serious: No
  Sender: FDA-Public Use
  Company Number: 2013P1002719

PATIENT
  Age: 9 Day
  Sex: Female

DRUGS (7)
  1. FLECAINIDE [Suspect]
     Indication: TACHYCARDIA
     Route: 048
  2. AMIODARONE [Concomitant]
  3. PROPRANOLOL [Concomitant]
  4. ADENOSINE [Concomitant]
  5. PROPRANOLOL [Concomitant]
  6. DIGOXIN [Concomitant]
  7. AMIODARONE [Concomitant]

REACTIONS (3)
  - Bundle branch block right [None]
  - Tachycardia [None]
  - Toxicity to various agents [None]
